FAERS Safety Report 25809818 (Version 1)
Quarter: 2025Q3

REPORT INFORMATION
  Report Type: Spontaneous
  Country: GB (occurrence: GB)
  Receive Date: 20250916
  Receipt Date: 20250916
  Transmission Date: 20251020
  Serious: Yes (Other)
  Sender: TEVA
  Company Number: GB-MHRA-TPP21555822C1660691YC1757661621866

PATIENT
  Age: 83 Year
  Sex: Female
  Weight: 73 kg

DRUGS (11)
  1. ZOLEDRONIC ACID [Suspect]
     Active Substance: ZOLEDRONIC ACID
     Indication: Ill-defined disorder
     Route: 065
     Dates: start: 20250814
  2. FOLIC ACID [Concomitant]
     Active Substance: FOLIC ACID
     Indication: Ill-defined disorder
     Dates: start: 20240808
  3. OMEPRAZOLE [Concomitant]
     Active Substance: OMEPRAZOLE
     Indication: Ill-defined disorder
     Dosage: DAILY DOSAGE: 1 DOSAGE FORM
     Dates: start: 20240808, end: 20250909
  4. METHOTREXATE [Concomitant]
     Active Substance: METHOTREXATE
     Indication: Ill-defined disorder
     Dates: start: 20240808, end: 20250909
  5. FAMOTIDINE [Concomitant]
     Active Substance: FAMOTIDINE
     Indication: Ill-defined disorder
     Dosage: DAILY DOSAGE: 2 DOSAGE FORM
     Dates: start: 20250909
  6. ATORVASTATIN [Concomitant]
     Active Substance: ATORVASTATIN
     Indication: Ill-defined disorder
     Dosage: DAILY DOSAGE: 1 DOSAGE FORM
     Dates: start: 20250129
  7. RISEDRONATE SODIUM [Concomitant]
     Active Substance: RISEDRONATE SODIUM
     Indication: Ill-defined disorder
     Dates: start: 20240808, end: 20250814
  8. LEVOTHYROXINE [Concomitant]
     Active Substance: LEVOTHYROXINE
     Indication: Ill-defined disorder
     Dosage: DAILY DOSAGE: 1 DOSAGE FORM;EACH MORNING TO TREAT UNDERACTI...
     Dates: start: 20240808
  9. SULFASALAZINE [Concomitant]
     Active Substance: SULFASALAZINE
     Indication: Ill-defined disorder
     Dosage: DAILY DOSAGE: 4 DOSAGE FORM
     Dates: start: 20241004, end: 20250909
  10. CALCIUM CARBONATE\CHOLECALCIFEROL [Concomitant]
     Active Substance: CALCIUM CARBONATE\CHOLECALCIFEROL
     Indication: Ill-defined disorder
     Dosage: DAILY DOSAGE: 1 DOSAGE FORM
     Dates: start: 20240808
  11. RITUXIMAB [Concomitant]
     Active Substance: RITUXIMAB
     Indication: Ill-defined disorder
     Dates: start: 20250807

REACTIONS (1)
  - Acute kidney injury [Recovering/Resolving]
